FAERS Safety Report 5964026-9 (Version None)
Quarter: 2008Q4

REPORT INFORMATION
  Report Type: 
  Country: None (occurrence: None)
  Receive Date: 20081119
  Receipt Date: 20080818
  Transmission Date: 20090506
  Serious: No
  Sender: FDA-Public Use
  Company Number: WAES 0808USA03103

PATIENT
  Age: 58 Year
  Sex: Female

DRUGS (4)
  1. JANUVIA [Suspect]
     Indication: BLOOD GLUCOSE
     Dosage: 50 MG/DAILY/PO : 100 MG/DAILY/PO
     Route: 048
     Dates: start: 20080606, end: 20080725
  2. JANUVIA [Suspect]
     Indication: BLOOD GLUCOSE
     Dosage: 50 MG/DAILY/PO : 100 MG/DAILY/PO
     Route: 048
     Dates: start: 20080725
  3. HUMULIN [Concomitant]
  4. LANTUS [Concomitant]

REACTIONS (1)
  - DYSPNOEA [None]
